FAERS Safety Report 7626400-4 (Version None)
Quarter: 2011Q3

REPORT INFORMATION
  Report Type: 
  Country: None (occurrence: None)
  Receive Date: 20110714
  Receipt Date: 20110629
  Transmission Date: 20111222
  Serious: Yes (Hospitalization)
  Sender: FDA-Public Use
  Company Number: COL_09267_2011

PATIENT
  Sex: Female
  Weight: 83.9154 kg

DRUGS (6)
  1. PROTEX VITAMIN E BAR SOAP [Suspect]
     Dosage: 1% W/V
     Dates: start: 20110627, end: 20110629
  2. PROTEX CREAM LIQUID HAND SOAP [Suspect]
     Dosage: 1%  W/V
     Dates: start: 20110627, end: 20110629
  3. LUX WHITE BAR SOAP [Suspect]
     Dates: start: 20110627, end: 20110629
  4. OX AROME LIQUID HAND SOAP [Suspect]
     Dates: start: 20110627, end: 20110629
  5. SOFTSOAP APRICOT SUNSHINE LIQUID HAND SOAP [Suspect]
     Dosage: 1% W/V
     Dates: start: 20110627, end: 20110629
  6. DIAL LIQUID HAND SOAP [Suspect]
     Dates: start: 20110627, end: 20110629

REACTIONS (1)
  - MYOCARDIAL INFARCTION [None]
